FAERS Safety Report 5599265-2 (Version None)
Quarter: 2008Q1

REPORT INFORMATION
  Report Type: 
  Country: None (occurrence: None)
  Receive Date: 20080117
  Receipt Date: 20080103
  Transmission Date: 20080703
  Serious: Yes (Death, Hospitalization)
  Sender: FDA-Public Use
  Company Number: M7002-00630-CLI-US

PATIENT
  Age: 45 Year
  Sex: Female
  Weight: 127 kg

DRUGS (13)
  1. ONTAK [Suspect]
     Indication: PERIPHERAL T-CELL LYMPHOMA UNSPECIFIED
     Dosage: 1620 MG, 2 IN 21 D, INTRAVENOUS
     Route: 042
     Dates: start: 20071212, end: 20071213
  2. CYCLOPHOSPHAMIDE [Concomitant]
  3. DOXORUBICIN HCL [Concomitant]
  4. VINCRISTINE [Concomitant]
  5. PREDNISONE [Concomitant]
  6. NEULASTA [Concomitant]
  7. NORGESTIMATE (NORGESTIMATE) [Concomitant]
  8. ETINOL [Concomitant]
  9. PRILOSEC [Concomitant]
  10. ALLOPURINOL [Concomitant]
  11. COMPAZINE (PROCHLORPERAZINE EDISYLATE) [Concomitant]
  12. ATARAX [Concomitant]
  13. HYDROMORPHONE HCL [Concomitant]

REACTIONS (7)
  - BRADYCARDIA [None]
  - CARDIO-RESPIRATORY ARREST [None]
  - DYSPNOEA [None]
  - FATIGUE [None]
  - MUSCULOSKELETAL PAIN [None]
  - SINUS TACHYCARDIA [None]
  - UNRESPONSIVE TO STIMULI [None]
